FAERS Safety Report 11866180 (Version 2)
Quarter: 2017Q1

REPORT INFORMATION
  Report Type: Report from Study
  Country: US (occurrence: US)
  Receive Date: 20151223
  Receipt Date: 20170201
  Transmission Date: 20170428
  Serious: No
  Sender: FDA-Public Use
  Company Number: US-EXELIXIS-CABO-15005772

PATIENT
  Age: 55 Year
  Sex: Male

DRUGS (7)
  1. LEVOTHYROXINE. [Concomitant]
     Active Substance: LEVOTHYROXINE
  2. COMETRIQ [Suspect]
     Active Substance: CABOZANTINIB S-MALATE
     Dosage: 80 MG, QD
     Route: 048
     Dates: start: 20160318, end: 2016
  3. COMETRIQ [Suspect]
     Active Substance: CABOZANTINIB S-MALATE
     Dosage: 80 MG, FOR 1 WEEK, THEN ADD 20 MG PILL FOR NEXT WEEK, THEN ADD 2ND 20 MG PILL FOR NEXT WEEK
     Route: 048
     Dates: start: 201607
  4. CALCIUM [Concomitant]
     Active Substance: CALCIUM
  5. COMETRIQ [Suspect]
     Active Substance: CABOZANTINIB S-MALATE
     Indication: THYROID CANCER
     Dosage: 140 MG, QD
     Route: 048
     Dates: start: 20151011, end: 2015
  6. COMETRIQ [Suspect]
     Active Substance: CABOZANTINIB S-MALATE
     Dosage: 140 MG, QD
     Route: 048
     Dates: start: 201612
  7. COMETRIQ [Suspect]
     Active Substance: CABOZANTINIB S-MALATE
     Dosage: 140 MG, QD
     Route: 048
     Dates: start: 201511

REACTIONS (20)
  - Skin discolouration [Unknown]
  - Skin exfoliation [Unknown]
  - Dyspepsia [Unknown]
  - Neuropathy peripheral [Recovering/Resolving]
  - Tenderness [Unknown]
  - Neck pain [Unknown]
  - Diarrhoea [Not Recovered/Not Resolved]
  - Arthralgia [Unknown]
  - Dysphagia [Unknown]
  - Pain [Unknown]
  - Limb injury [Unknown]
  - Pain in extremity [Not Recovered/Not Resolved]
  - Throat irritation [Not Recovered/Not Resolved]
  - Vocal cord thickening [Unknown]
  - Mouth haemorrhage [Unknown]
  - Fatigue [Unknown]
  - Burning sensation [Unknown]
  - Pollakiuria [Unknown]
  - Epistaxis [Unknown]
  - Oropharyngeal pain [Unknown]

NARRATIVE: CASE EVENT DATE: 201510
